FAERS Safety Report 8504915-4 (Version None)
Quarter: 2012Q3

REPORT INFORMATION
  Report Type: 
  Country: None (occurrence: None)
  Receive Date: 20120712
  Receipt Date: 20120705
  Transmission Date: 20120928
  Serious: Yes (Other)
  Sender: FDA-Public Use
  Company Number: PHHY2012BR058450

PATIENT
  Age: 67 Year
  Sex: Female

DRUGS (8)
  1. METFORMIN HCL [Suspect]
     Indication: DIABETES MELLITUS
     Dosage: 2 DF, DAILY (50 MG)
  2. CONCOR [Concomitant]
  3. DIOVAN HCT [Suspect]
     Dosage: 1 DF, DAILY (160 MG VALS AND 25 MG HYDR)
  4. SIMVASTATIN [Concomitant]
  5. AMARYL [Concomitant]
     Dosage: 2 DF, UNK
  6. TEGRETOL [Suspect]
     Indication: FEELING OF RELAXATION
     Dosage: 2 DF, DAILY (200 MG)
  7. WARFARIN SODIUM [Concomitant]
  8. SUSTRATE [Concomitant]

REACTIONS (3)
  - ANXIETY [None]
  - GAIT DISTURBANCE [None]
  - FEMUR FRACTURE [None]
